FAERS Safety Report 18498570 (Version 1)
Quarter: 2020Q4

REPORT INFORMATION
  Report Type: Spontaneous
  Country: GB (occurrence: GB)
  Receive Date: 20201113
  Receipt Date: 20201113
  Transmission Date: 20210114
  Serious: Yes (Other)
  Sender: FDA-Public Use
  Company Number: GB-SUN PHARMACEUTICAL INDUSTRIES LTD-2020RR-267262

PATIENT
  Age: 47 Year
  Sex: Female
  Weight: 83 kg

DRUGS (9)
  1. NITROFURANTOIN. [Concomitant]
     Active Substance: NITROFURANTOIN
     Indication: PRODUCT USED FOR UNKNOWN INDICATION
     Dosage: 2 DOSAGE FORM, DAILY
     Route: 065
     Dates: start: 20200930, end: 20201004
  2. CITALOPRAM [Concomitant]
     Active Substance: CITALOPRAM HYDROBROMIDE
     Indication: PRODUCT USED FOR UNKNOWN INDICATION
     Dosage: 1 DOSAGE FORM, DAILY
     Route: 065
     Dates: start: 20190529
  3. DIAZEPAM. [Concomitant]
     Active Substance: DIAZEPAM
     Indication: PRODUCT USED FOR UNKNOWN INDICATION
     Dosage: 2 DOSAGE FORM, DAILY, MAXIMUM
     Route: 065
     Dates: start: 20201005, end: 20201010
  4. ZOPICLONE [Concomitant]
     Active Substance: ZOPICLONE
     Indication: PRODUCT USED FOR UNKNOWN INDICATION
     Dosage: 1 DOSAGE FORM, DAILY, NIGHT
     Route: 065
     Dates: start: 20201005, end: 20201012
  5. PIVMECILLINAM [Concomitant]
     Active Substance: AMDINOCILLIN PIVOXIL
     Indication: PRODUCT USED FOR UNKNOWN INDICATION
     Dosage: 2 INITIALLY THEN ONE 3 TIMES DAILY ()
     Route: 065
     Dates: start: 20201016
  6. PROPRANOLOL [Concomitant]
     Active Substance: PROPRANOLOL HYDROCHLORIDE
     Indication: PRODUCT USED FOR UNKNOWN INDICATION
     Dosage: 1 DOSAGE FORM, DAILY
     Route: 065
     Dates: start: 20190731
  7. NON-MEDICINAL PRODUCT [Concomitant]
     Active Substance: UNSPECIFIED INGREDIENT
     Indication: PRODUCT USED FOR UNKNOWN INDICATION
     Dosage: ()
     Route: 065
     Dates: start: 20200925, end: 20201009
  8. FLUOXETINE [Concomitant]
     Active Substance: FLUOXETINE HYDROCHLORIDE
     Indication: PRODUCT USED FOR UNKNOWN INDICATION
     Dosage: 1 DOSAGE FORM, DAILY, PREFERABLY IN THE MORNING
     Route: 065
     Dates: start: 20201016
  9. VENLAFAXINE [Suspect]
     Active Substance: VENLAFAXINE HYDROCHLORIDE
     Indication: PRODUCT USED FOR UNKNOWN INDICATION
     Dosage: 75 MILLIGRAM, DAILY
     Route: 065
     Dates: start: 20201005

REACTIONS (7)
  - Glossodynia [Unknown]
  - Lip pain [Unknown]
  - Pharyngeal swelling [Unknown]
  - Lip swelling [Recovering/Resolving]
  - Pharyngeal paraesthesia [Unknown]
  - Throat tightness [Unknown]
  - Paraesthesia oral [Unknown]

NARRATIVE: CASE EVENT DATE: 20201016
